FAERS Safety Report 5080232-2 (Version None)
Quarter: 2006Q3

REPORT INFORMATION
  Report Type: 
  Country: None (occurrence: None)
  Receive Date: 20060810
  Receipt Date: 20060803
  Transmission Date: 20061208
  Serious: Yes (Life-Threatening, Hospitalization)
  Sender: FDA-Public Use
  Company Number: US-2006-021840

PATIENT
  Age: 76 Year
  Sex: Male

DRUGS (7)
  1. CAMPATH [Suspect]
     Indication: CHRONIC LYMPHOCYTIC LEUKAEMIA
     Dosage: D1-5 EVERY 28 DAYS, SUBCUTANEOUS
     Route: 058
     Dates: start: 20060313, end: 20060728
  2. FLUDARA [Suspect]
     Indication: CHRONIC LYMPHOCYTIC LEUKAEMIA
     Dosage: D1-5 EVERY 28 DAYS, INTRAVENOUS
     Route: 042
     Dates: start: 20060313, end: 20060728
  3. SLOW-MAG            (MAGNESIUM CHLORIDE ANHYDROUS) [Concomitant]
  4. DIPHENHYDRAMINE HYDROCHLORIDE [Concomitant]
  5. ACETAMINOPHEN [Concomitant]
  6. EPOETIN ALFA [Concomitant]
  7. RED BLOOD CELLS [Concomitant]

REACTIONS (9)
  - ANAEMIA [None]
  - BACTERAEMIA [None]
  - CONDITION AGGRAVATED [None]
  - CONFUSIONAL STATE [None]
  - HYPONATRAEMIA [None]
  - LETHARGY [None]
  - RENAL FAILURE [None]
  - URINARY RETENTION [None]
  - URINARY TRACT INFECTION [None]
